FAERS Safety Report 7744647-3 (Version None)
Quarter: 2011Q3

REPORT INFORMATION
  Report Type: 
  Country: None (occurrence: None)
  Receive Date: 20110912
  Receipt Date: 20110829
  Transmission Date: 20111222
  Serious: Yes (Hospitalization, Other)
  Sender: FDA-Public Use
  Company Number: PHHY2011BR77778

PATIENT
  Sex: Male

DRUGS (1)
  1. EXFORGE [Suspect]
     Dosage: 1 DF, (320/5 MG)

REACTIONS (5)
  - DIABETES MELLITUS [None]
  - CARDIOMEGALY [None]
  - HYPERTENSION [None]
  - LIMB INJURY [None]
  - HEADACHE [None]
